FAERS Safety Report 6315672-4 (Version None)
Quarter: 2009Q3

REPORT INFORMATION
  Report Type: 
  Country: None (occurrence: None)
  Receive Date: 20090818
  Receipt Date: 20090804
  Transmission Date: 20100115
  Serious: Yes (Hospitalization)
  Sender: FDA-Public Use
  Company Number: 2008AL008841

PATIENT
  Age: 54 Year
  Sex: Male

DRUGS (10)
  1. DIGOXIN [Suspect]
     Dosage: 0.25MG, DAILY, PO
     Route: 048
  2. ENALAPRIL MALEATE [Concomitant]
  3. ALBUTEROL [Concomitant]
  4. ALLOPURINOL [Concomitant]
  5. METFORMIN HCL [Concomitant]
  6. ASPIRIN [Concomitant]
  7. LASIX [Concomitant]
  8. COREG [Concomitant]
  9. LEVENIR [Concomitant]
  10. TYLENOL (CAPLET) [Concomitant]

REACTIONS (6)
  - ASTHMA [None]
  - BLOOD GLUCOSE INCREASED [None]
  - CONGESTIVE CARDIOMYOPATHY [None]
  - DISEASE RECURRENCE [None]
  - INJURY [None]
  - OEDEMA PERIPHERAL [None]
